FAERS Safety Report 23104057 (Version 2)
Quarter: 2023Q4

REPORT INFORMATION
  Report Type: Report from Study
  Country: US (occurrence: US)
  Receive Date: 20231025
  Receipt Date: 20231124
  Transmission Date: 20240109
  Serious: Yes (Other)
  Sender: FDA-Public Use
  Company Number: US-SA-SAC20230112000046

PATIENT
  Age: 84 Year
  Sex: Male

DRUGS (1)
  1. AVALGLUCOSIDASE ALFA-NGPT [Suspect]
     Active Substance: AVALGLUCOSIDASE ALFA-NGPT
     Indication: Glycogen storage disease type II
     Dosage: 3000 MG, QOW
     Route: 042
     Dates: start: 20210930, end: 20230110

REACTIONS (10)
  - Loss of consciousness [Recovered/Resolved]
  - Trigeminal neuralgia [Recovered/Resolved]
  - Condition aggravated [Recovered/Resolved]
  - Cold sweat [Unknown]
  - Malaise [Unknown]
  - Pallor [Recovered/Resolved]
  - Dizziness [Recovered/Resolved]
  - Vomiting [Unknown]
  - Fatigue [Unknown]
  - COVID-19 [Unknown]

NARRATIVE: CASE EVENT DATE: 20230101
